FAERS Safety Report 9621210 (Version 2)
Quarter: 2013Q4

REPORT INFORMATION
  Report Type: Spontaneous
  Country: CA (occurrence: CA)
  Receive Date: 20131015
  Receipt Date: 20131017
  Transmission Date: 20140711
  Serious: No
  Sender: FDA-Public Use
  Company Number: CA-JNJFOC-20131004728

PATIENT
  Sex: Male

DRUGS (2)
  1. XARELTO [Suspect]
     Indication: PRODUCT USED FOR UNKNOWN INDICATION
     Route: 048
  2. XARELTO [Suspect]
     Indication: PRODUCT USED FOR UNKNOWN INDICATION
     Route: 048

REACTIONS (2)
  - Hyperkalaemia [Recovered/Resolved]
  - Contusion [Unknown]
